FAERS Safety Report 8042046-0 (Version None)
Quarter: 2012Q1

REPORT INFORMATION
  Report Type: 
  Country: None (occurrence: None)
  Receive Date: 20120112
  Receipt Date: 20120109
  Transmission Date: 20120608
  Serious: Yes (Other)
  Sender: FDA-Public Use
  Company Number: US-BAYER-2012-003145

PATIENT
  Age: 33 Year
  Sex: Female

DRUGS (1)
  1. MIRENA [Suspect]
     Indication: CONTRACEPTION
     Dosage: 20 MCG/24HR, UNK
     Route: 015
     Dates: start: 20100801

REACTIONS (7)
  - UTERINE HAEMORRHAGE [None]
  - ABORTION EARLY [None]
  - PAIN [None]
  - VISCERAL PAIN [None]
  - PROCEDURAL PAIN [None]
  - PREGNANCY WITH CONTRACEPTIVE DEVICE [None]
  - GENITAL HAEMORRHAGE [None]
